FAERS Safety Report 4745588-6 (Version None)
Quarter: 2005Q3

REPORT INFORMATION
  Report Type: 
  Country: None (occurrence: None)
  Receive Date: 20050815
  Receipt Date: 20050801
  Transmission Date: 20060218
  Serious: Yes (Other)
  Sender: FDA-Public Use
  Company Number: 2005111857

PATIENT
  Sex: Female
  Weight: 83.9154 kg

DRUGS (4)
  1. FELDENE [Suspect]
     Indication: BACK PAIN
  2. NAPROSYN [Suspect]
     Indication: ILL-DEFINED DISORDER
  3. ANTIINFLAMMATORY/ANTIRHEUMATIC PRODUCTS (ANTIINFLAMMATORY/ANTIRHEUMATI [Suspect]
     Indication: ILL-DEFINED DISORDER
  4. SYNTHROID [Concomitant]

REACTIONS (3)
  - ABDOMINAL PAIN UPPER [None]
  - SPINAL FUSION SURGERY [None]
  - STOMACH DISCOMFORT [None]
